FAERS Safety Report 7473428-3 (Version None)
Quarter: 2011Q2

REPORT INFORMATION
  Report Type: 
  Country: None (occurrence: None)
  Receive Date: 20110511
  Receipt Date: 20110506
  Transmission Date: 20111010
  Serious: Yes (Other)
  Sender: FDA-Public Use
  Company Number: US-BAYER-2011-026365

PATIENT
  Age: 72 Year
  Sex: Female

DRUGS (5)
  1. STARLIX [Concomitant]
     Indication: DIABETES MELLITUS
  2. ANTIHYPERTENSIVES [Concomitant]
     Indication: HYPERTENSION
  3. NEXAVAR [Suspect]
     Indication: HEPATIC NEOPLASM MALIGNANT
     Dosage: 400 MG, BID
     Route: 048
     Dates: start: 20110312, end: 20110317
  4. ANALGESICS [Concomitant]
  5. METFORMIN HCL [Concomitant]
     Indication: DIABETES MELLITUS

REACTIONS (12)
  - PANCREATIC DISORDER [None]
  - ASTHENIA [None]
  - FLUID INTAKE REDUCED [None]
  - MUSCULOSKELETAL CHEST PAIN [None]
  - VISION BLURRED [None]
  - PHARYNGEAL DISORDER [None]
  - FALL [None]
  - CONTUSION [None]
  - JOINT INJURY [None]
  - NAUSEA [None]
  - DISORIENTATION [None]
  - CONFUSIONAL STATE [None]
